FAERS Safety Report 6771131-6 (Version None)
Quarter: 2010Q2

REPORT INFORMATION
  Report Type: 
  Country: None (occurrence: None)
  Receive Date: 20100614
  Receipt Date: 20100614
  Transmission Date: 20101027
  Serious: Yes (Life-Threatening, Other)
  Sender: FDA-Public Use
  Company Number: None

PATIENT
  Sex: Male
  Weight: 78.0187 kg

DRUGS (2)
  1. WELLBUTRIN [Suspect]
     Indication: MOOD ALTERED
     Dosage: ONE PILL 1 EACH DAY EVENING
  2. WELLBUTRIN [Suspect]
     Indication: SMOKING CESSATION THERAPY
     Dosage: ONE PILL 1 EACH DAY EVENING

REACTIONS (10)
  - AGGRESSION [None]
  - DEPRESSED MOOD [None]
  - FEELING OF DESPAIR [None]
  - HALLUCINATION [None]
  - HOMICIDAL IDEATION [None]
  - IMPRISONMENT [None]
  - IRRITABILITY [None]
  - NIGHTMARE [None]
  - PHYSICAL ABUSE [None]
  - SUICIDAL IDEATION [None]
